FAERS Safety Report 16380115 (Version 1)
Quarter: 2019Q2

REPORT INFORMATION
  Report Type: Spontaneous
  Country: JP (occurrence: JP)
  Receive Date: 20190601
  Receipt Date: 20190601
  Transmission Date: 20190711
  Serious: Yes (Other)
  Sender: FDA-Public Use
  Company Number: JP-009507513-1905JPN002867J

PATIENT

DRUGS (1)
  1. PREVYMIS [Suspect]
     Active Substance: LETERMOVIR
     Indication: ANTIVIRAL PROPHYLAXIS
     Dosage: UNK
     Route: 048

REACTIONS (18)
  - Hypertriglyceridaemia [Unknown]
  - Hyperamylasaemia [Unknown]
  - Pneumonia [Unknown]
  - Sepsis [Unknown]
  - Stomatitis [Unknown]
  - Alanine aminotransferase increased [Unknown]
  - Hypercholesterolaemia [Unknown]
  - Skin infection [Unknown]
  - Oedema peripheral [Unknown]
  - Diarrhoea [Unknown]
  - Cystitis haemorrhagic [Unknown]
  - Neuropathy peripheral [Unknown]
  - Blood bilirubin increased [Unknown]
  - Proctitis [Unknown]
  - Pneumatosis intestinalis [Unknown]
  - Blood creatinine increased [Unknown]
  - Blood alkaline phosphatase increased [Unknown]
  - Sinusitis [Unknown]
